FAERS Safety Report 7355061-7 (Version None)
Quarter: 2011Q1

REPORT INFORMATION
  Report Type: 
  Country: None (occurrence: None)
  Receive Date: 20110316
  Receipt Date: 20110311
  Transmission Date: 20110831
  Serious: Yes (Other)
  Sender: FDA-Public Use
  Company Number: US-PFIZER INC-2006069857

PATIENT
  Sex: Female

DRUGS (11)
  1. NEURONTIN [Suspect]
     Dosage: 400 MG, 2X/DAY
     Dates: start: 20060301
  2. NEURONTIN [Suspect]
     Indication: ILL-DEFINED DISORDER
     Dosage: 300 MG, UNK
     Route: 065
     Dates: start: 20020318
  3. NEURONTIN [Suspect]
     Dosage: UNK
     Dates: start: 20020713
  4. NEURONTIN [Suspect]
     Dosage: 300 MG, 3X/DAY
     Dates: start: 20020714
  5. NEURONTIN [Suspect]
     Dosage: 400 MG, 3X/DAY
     Dates: start: 20060203
  6. NEURONTIN [Suspect]
     Dosage: 400 MG, UNK
     Dates: start: 20060210
  7. NEURONTIN [Suspect]
     Dosage: 600 MG, 3X/DAY
     Dates: start: 20031031
  8. NEURONTIN [Suspect]
     Dosage: 300 MG, 2X/DAY
     Dates: start: 20020719
  9. NEURONTIN [Suspect]
     Dosage: UNK
     Dates: start: 20060119
  10. NEURONTIN [Suspect]
     Dosage: 800 MG, UNK
     Dates: start: 20040521
  11. NEURONTIN [Suspect]
     Dosage: 800 MG, AT EVERY BEDTIME
     Dates: start: 20050812

REACTIONS (2)
  - SUICIDE ATTEMPT [None]
  - INTENTIONAL OVERDOSE [None]
